FAERS Safety Report 17076965 (Version 1)
Quarter: 2019Q4

REPORT INFORMATION
  Report Type: Report from Study
  Country: US (occurrence: US)
  Receive Date: 20191126
  Receipt Date: 20191126
  Transmission Date: 20200122
  Serious: Yes (Hospitalization)
  Sender: FDA-Public Use
  Company Number: US-PFIZER INC-2018461249

PATIENT
  Age: 55 Year
  Sex: Male

DRUGS (1)
  1. XELJANZ [Suspect]
     Active Substance: TOFACITINIB CITRATE
     Indication: RHEUMATOID ARTHRITIS
     Dosage: 5 MG, 2X/DAY
     Route: 048
     Dates: start: 201809, end: 20191018

REACTIONS (7)
  - Pain [Not Recovered/Not Resolved]
  - Bacterial infection [Unknown]
  - Chest X-ray abnormal [Unknown]
  - Arthralgia [Recovering/Resolving]
  - Pneumonia [Recovered/Resolved]
  - Product dose omission [Unknown]
  - Sensitivity to weather change [Unknown]

NARRATIVE: CASE EVENT DATE: 2018
